FAERS Safety Report 19064112 (Version 1)
Quarter: 2021Q1

REPORT INFORMATION
  Report Type: Spontaneous
  Country: FR (occurrence: FR)
  Receive Date: 20210326
  Receipt Date: 20210326
  Transmission Date: 20210420
  Serious: Yes (Other)
  Sender: FDA-Public Use
  Company Number: FR-PFIZER INC-2021282525

PATIENT
  Age: 57 Year
  Sex: Female

DRUGS (1)
  1. AROMASINE [Suspect]
     Active Substance: EXEMESTANE
     Dosage: 25 MG, 1X/DAY
     Route: 048
     Dates: start: 2018, end: 20210211

REACTIONS (5)
  - Vulvovaginal dryness [Not Recovered/Not Resolved]
  - Myalgia [Not Recovered/Not Resolved]
  - Osteopenia [Not Recovered/Not Resolved]
  - Paraesthesia [Not Recovered/Not Resolved]
  - Arthralgia [Not Recovered/Not Resolved]

NARRATIVE: CASE EVENT DATE: 20180101
